FAERS Safety Report 24049750 (Version 3)
Quarter: 2024Q3

REPORT INFORMATION
  Report Type: Report from Study
  Country: JP (occurrence: JP)
  Receive Date: 20240704
  Receipt Date: 20240723
  Transmission Date: 20241017
  Serious: Yes (Death)
  Sender: JOHNSON AND JOHNSON
  Company Number: JP-JNJFOC-20240710475

PATIENT
  Age: 78 Year
  Sex: Female
  Weight: 47.5 kg

DRUGS (28)
  1. DARATUMUMAB [Suspect]
     Active Substance: DARATUMUMAB
     Indication: Primary amyloidosis
     Route: 058
     Dates: start: 20240418, end: 20240418
  2. DARATUMUMAB [Suspect]
     Active Substance: DARATUMUMAB
     Route: 058
     Dates: start: 20240425, end: 20240425
  3. DARATUMUMAB [Suspect]
     Active Substance: DARATUMUMAB
     Route: 058
     Dates: start: 20240501, end: 20240501
  4. DARATUMUMAB [Suspect]
     Active Substance: DARATUMUMAB
     Route: 058
     Dates: start: 20240508, end: 20240508
  5. DARATUMUMAB [Suspect]
     Active Substance: DARATUMUMAB
     Route: 058
     Dates: start: 20240529, end: 20240529
  6. DARATUMUMAB [Suspect]
     Active Substance: DARATUMUMAB
     Route: 058
     Dates: start: 20240605, end: 20240605
  7. DARATUMUMAB [Suspect]
     Active Substance: DARATUMUMAB
     Route: 058
     Dates: start: 20240612, end: 20240612
  8. DARATUMUMAB [Suspect]
     Active Substance: DARATUMUMAB
     Route: 058
     Dates: start: 20240619, end: 20240619
  9. DARATUMUMAB [Suspect]
     Active Substance: DARATUMUMAB
     Route: 058
     Dates: start: 20240626, end: 20240626
  10. VELCADE [Suspect]
     Active Substance: BORTEZOMIB
     Indication: Primary amyloidosis
     Dosage: SINGLE DOSE: 0.7
     Route: 065
     Dates: start: 20240418, end: 20240418
  11. VELCADE [Suspect]
     Active Substance: BORTEZOMIB
     Dosage: SINGLE DOSE: 0.7
     Route: 065
     Dates: start: 20240425, end: 20240425
  12. VELCADE [Suspect]
     Active Substance: BORTEZOMIB
     Dosage: SINGLE DOSE: 0.7
     Route: 065
     Dates: start: 20240501, end: 20240501
  13. VELCADE [Suspect]
     Active Substance: BORTEZOMIB
     Dosage: SINGLE DOSE: 0.7
     Route: 065
     Dates: start: 20240508, end: 20240508
  14. VELCADE [Suspect]
     Active Substance: BORTEZOMIB
     Dosage: SINGLE DOSE: 0.7
     Route: 065
     Dates: start: 20240605, end: 20240605
  15. VELCADE [Suspect]
     Active Substance: BORTEZOMIB
     Dosage: SINGLE DOSE: 0.7
     Route: 065
     Dates: start: 20240612, end: 20240612
  16. VELCADE [Suspect]
     Active Substance: BORTEZOMIB
     Dosage: SINGLE DOSE: 0.7
     Route: 065
     Dates: start: 20240619, end: 20240619
  17. VELCADE [Suspect]
     Active Substance: BORTEZOMIB
     Dosage: SINGLE DOSE: 0.7
     Route: 065
     Dates: start: 20240626, end: 20240626
  18. DEXAMETHASONE [Suspect]
     Active Substance: DEXAMETHASONE
     Indication: Primary amyloidosis
     Route: 065
     Dates: start: 20240418, end: 20240419
  19. DEXAMETHASONE [Suspect]
     Active Substance: DEXAMETHASONE
     Route: 065
     Dates: start: 20240425, end: 20240425
  20. DEXAMETHASONE [Suspect]
     Active Substance: DEXAMETHASONE
     Route: 065
     Dates: start: 20240501, end: 20240501
  21. DEXAMETHASONE [Suspect]
     Active Substance: DEXAMETHASONE
     Route: 065
     Dates: start: 20240508, end: 20240508
  22. DEXAMETHASONE [Suspect]
     Active Substance: DEXAMETHASONE
     Route: 065
     Dates: start: 20240605, end: 20240605
  23. DEXAMETHASONE [Suspect]
     Active Substance: DEXAMETHASONE
     Route: 065
     Dates: start: 20240612, end: 20240612
  24. DEXAMETHASONE [Suspect]
     Active Substance: DEXAMETHASONE
     Route: 065
     Dates: start: 20240619, end: 20240619
  25. CYCLOPHOSPHAMIDE [Concomitant]
     Active Substance: CYCLOPHOSPHAMIDE
     Indication: Primary amyloidosis
     Dosage: DAILY DOSAGE: 150.0
     Route: 065
     Dates: start: 20240418, end: 20240418
  26. CYCLOPHOSPHAMIDE [Concomitant]
     Active Substance: CYCLOPHOSPHAMIDE
     Dosage: DAILY DOSAGE: 150.0
     Route: 065
     Dates: start: 20240425, end: 20240425
  27. CYCLOPHOSPHAMIDE [Concomitant]
     Active Substance: CYCLOPHOSPHAMIDE
     Dosage: DAILY DOSAGE: 150.0
     Route: 065
     Dates: start: 20240501, end: 20240501
  28. VALGANCICLOVIR HYDROCHLORIDE [Concomitant]
     Active Substance: VALGANCICLOVIR HYDROCHLORIDE
     Indication: Cytomegalovirus infection
     Dosage: DOSE UNKNOWN
     Route: 065
     Dates: start: 20240508, end: 20240604

REACTIONS (3)
  - Death [Fatal]
  - Cytomegalovirus infection [Recovered/Resolved]
  - Off label use [Unknown]

NARRATIVE: CASE EVENT DATE: 20240418
